FAERS Safety Report 24915776 (Version 1)
Quarter: 2025Q1

REPORT INFORMATION
  Report Type: Spontaneous
  Country: GB (occurrence: GB)
  Receive Date: 20250203
  Receipt Date: 20250203
  Transmission Date: 20250408
  Serious: Yes (Other)
  Sender: TEVA
  Company Number: GB-MHRA-TPP306784C12351153YC1736935491268

PATIENT
  Age: 70 Year
  Sex: Female
  Weight: 71 kg

DRUGS (6)
  1. TAMOXIFEN [Suspect]
     Active Substance: TAMOXIFEN
     Indication: Ill-defined disorder
     Dosage: AS DIRECTED,
     Route: 048
     Dates: start: 20240920
  2. QUININE SULFATE [Concomitant]
     Active Substance: QUININE SULFATE
     Indication: Ill-defined disorder
     Dosage: AT NIGHT,
     Dates: start: 20200911
  3. ROSUVASTATIN [Concomitant]
     Active Substance: ROSUVASTATIN
     Indication: Ill-defined disorder
     Dosage: (STOP ATORVASTATIN)
     Dates: start: 20230208
  4. BISOPROLOL [Concomitant]
     Active Substance: BISOPROLOL
     Indication: Ill-defined disorder
     Dates: start: 20200911
  5. AMITRIPTYLINE HYDROCHLORIDE [Concomitant]
     Active Substance: AMITRIPTYLINE HYDROCHLORIDE
     Indication: Ill-defined disorder
     Dates: start: 20200911
  6. LANSOPRAZOLE [Concomitant]
     Active Substance: LANSOPRAZOLE
     Indication: Ill-defined disorder
     Dosage: EACH MORNING,
     Dates: start: 20200911

REACTIONS (6)
  - Muscle spasms [Recovered/Resolved]
  - Disturbance in attention [Recovered/Resolved]
  - Urinary incontinence [Recovered/Resolved]
  - Brain fog [Unknown]
  - Night sweats [Recovered/Resolved]
  - Sleep disorder [Recovered/Resolved]

NARRATIVE: CASE EVENT DATE: 20241007
